FAERS Safety Report 4365893-5 (Version None)
Quarter: 2004Q2

REPORT INFORMATION
  Report Type: 
  Country: None (occurrence: None)
  Receive Date: 20040527
  Receipt Date: 20040517
  Transmission Date: 20050107
  Serious: Yes (Other)
  Sender: FDA-Public Use
  Company Number: CH-BRISTOL-MYERS SQUIBB COMPANY-12590170

PATIENT
  Age: 31 Year
  Sex: Male

DRUGS (2)
  1. ARIPIPRAZOLE [Suspect]
     Indication: SCHIZOPHRENIA
     Dosage: INCREASED TO 30 MG/DAY IN FEB-2004
     Route: 048
     Dates: end: 20040301
  2. CLOZAPINE [Concomitant]
     Dosage: DOSE REDUCED

REACTIONS (2)
  - SCHIZOPHRENIA [None]
  - WEIGHT DECREASED [None]
